FAERS Safety Report 4504525-X (Version None)
Quarter: 2004Q4

REPORT INFORMATION
  Report Type: 
  Country: None (occurrence: None)
  Receive Date: 20041116
  Receipt Date: 20041104
  Transmission Date: 20050328
  Serious: Yes (Life-Threatening)
  Sender: FDA-Public Use
  Company Number: 2004-121543-NL

PATIENT
  Age: 54 Year
  Sex: Female

DRUGS (8)
  1. VECURONIUM BROMIDE [Suspect]
     Indication: GENERAL ANAESTHESIA
     Dosage: 6.5 MG ONCE INTRAVENOUS (NOS)
     Route: 042
     Dates: start: 20040519, end: 20040519
  2. FENTANYL [Suspect]
     Indication: GENERAL ANAESTHESIA
     Dosage: INTRAVENOUS
     Route: 042
     Dates: start: 20040519, end: 20040519
  3. MEPIVACAINE HCL [Concomitant]
  4. EPIDURAL [Concomitant]
  5. ROPIVACAINE HYDROCHLORIDE [Concomitant]
  6. EPIDURAL [Concomitant]
  7. PROPOFOL [Concomitant]
  8. BUPRENORPHRINE HYDROCHLORIDE [Concomitant]

REACTIONS (3)
  - DYSPHAGIA [None]
  - OXYGEN SATURATION DECREASED [None]
  - POST PROCEDURAL COMPLICATION [None]
